FAERS Safety Report 8968030 (Version 2)
Quarter: 2013Q1

REPORT INFORMATION
  Report Type: Spontaneous
  Country: FR (occurrence: FR)
  Receive Date: 20121218
  Receipt Date: 20130304
  Transmission Date: 20140127
  Serious: Yes (Other)
  Sender: FDA-Public Use
  Company Number: FR-BRISTOL-MYERS SQUIBB COMPANY-17195496

PATIENT
  Age: 68 Year
  Sex: Female

DRUGS (6)
  1. ONGLYZA TABS 5 MG [Suspect]
     Route: 048
     Dates: start: 201111
  2. METFORMIN HCL [Suspect]
     Dates: start: 2007
  3. PLAVIX [Concomitant]
     Indication: CAROTID ARTERY STENOSIS
     Dates: start: 2007
  4. TAHOR [Concomitant]
     Indication: CAROTID ARTERY STENOSIS
     Dates: start: 2007
  5. APROVEL [Concomitant]
     Indication: CAROTID ARTERY STENOSIS
     Dates: start: 2007
  6. DEROXAT [Concomitant]
     Dates: start: 2007

REACTIONS (1)
  - Pancreatitis [Recovered/Resolved]
